FAERS Safety Report 23334705 (Version 6)
Quarter: 2025Q4

REPORT INFORMATION
  Report Type: Other
  Country: US (occurrence: US)
  Receive Date: 20231224
  Receipt Date: 20251025
  Transmission Date: 20260117
  Serious: No
  Sender: TRAVERE THERAPEUTICS
  Company Number: US-TRAVERE-2023TVT00810

PATIENT
  Age: 50 Year
  Sex: Female

DRUGS (5)
  1. FILSPARI [Suspect]
     Active Substance: SPARSENTAN
     Indication: Haematuria
     Route: 048
     Dates: start: 202310
  2. FILSPARI [Suspect]
     Active Substance: SPARSENTAN
     Indication: Chronic kidney disease
     Route: 048
  3. FILSPARI [Suspect]
     Active Substance: SPARSENTAN
     Route: 048
  4. FARXIGA [Concomitant]
     Active Substance: DAPAGLIFLOZIN PROPANEDIOL
  5. LOSARTAN POTASSIUM [Concomitant]
     Active Substance: LOSARTAN POTASSIUM

REACTIONS (15)
  - Dizziness [Unknown]
  - Product use in unapproved indication [Unknown]
  - Dyspnoea [Recovered/Resolved]
  - Fatigue [None]
  - Off label use [Unknown]
  - Blood potassium increased [None]
  - Stress [Unknown]
  - Haemorrhage [Unknown]
  - Feeling abnormal [Unknown]
  - Menstrual disorder [Unknown]
  - Agitation [Unknown]
  - Arthralgia [Unknown]
  - Arthritis [Unknown]
  - Adverse drug reaction [Recovered/Resolved]
  - Contraindicated product administered [Unknown]
